FAERS Safety Report 5872366-7 (Version None)
Quarter: 2008Q3

REPORT INFORMATION
  Report Type: 
  Country: None (occurrence: None)
  Receive Date: 20080905
  Receipt Date: 20080827
  Transmission Date: 20090109
  Serious: Yes (Hospitalization, Other)
  Sender: FDA-Public Use
  Company Number: DE-ABBOTT-08P-062-0465517-00

PATIENT
  Sex: Male

DRUGS (4)
  1. ERGENYL SOLUTION [Suspect]
     Indication: STATUS EPILEPTICUS
     Route: 041
     Dates: start: 20080716, end: 20080717
  2. METOPROLOL TARTRATE [Concomitant]
     Indication: TACHYCARDIA
     Route: 042
     Dates: start: 20080701, end: 20080701
  3. LORAZEPAM [Concomitant]
     Indication: CONVULSION
     Route: 042
     Dates: start: 20080701, end: 20080701
  4. LORAZEPAM [Concomitant]
     Indication: PROPHYLAXIS

REACTIONS (4)
  - DERMATITIS BULLOUS [None]
  - INFUSION SITE INDURATION [None]
  - PSYCHOTIC DISORDER [None]
  - SKIN HAEMORRHAGE [None]
